FAERS Safety Report 4646351-7 (Version None)
Quarter: 2005Q2

REPORT INFORMATION
  Report Type: 
  Country: None (occurrence: None)
  Receive Date: 20050422
  Receipt Date: 20050422
  Transmission Date: 20051028
  Serious: Yes (Hospitalization)
  Sender: FDA-Public Use
  Company Number: None

PATIENT
  Age: 45 Year
  Sex: Female
  Weight: 57.9 kg

DRUGS (6)
  1. NITROGLYCERIN TABLET [Suspect]
  2. ESTROGENS CONJUGATED [Concomitant]
  3. ASPIRIN [Concomitant]
  4. NIACIN (NIASPAN-KOS) [Concomitant]
  5. PSEUDOEPHEDRINE HCL [Concomitant]
  6. LORATADINE [Concomitant]

REACTIONS (1)
  - HYPOTENSION [None]
